FAERS Safety Report 7320323-6 (Version None)
Quarter: 2011Q1

REPORT INFORMATION
  Report Type: 
  Country: None (occurrence: None)
  Receive Date: 20110127
  Receipt Date: 20100223
  Transmission Date: 20110831
  Serious: No
  Sender: FDA-Public Use
  Company Number: 516350

PATIENT
  Sex: Male

DRUGS (1)
  1. HEPARIN SODIUM [Suspect]
     Indication: PRODUCT USED FOR UNKNOWN INDICATION
     Dosage: INTRAVENOUS DRIP
     Route: 041
     Dates: start: 20100201, end: 20100201

REACTIONS (2)
  - INCORRECT DRUG ADMINISTRATION RATE [None]
  - HAEMORRHAGE [None]
